FAERS Safety Report 11197956 (Version 2)
Quarter: 2015Q2

REPORT INFORMATION
  Report Type: Spontaneous
  Country: CN (occurrence: CN)
  Receive Date: 20150617
  Receipt Date: 20150618
  Transmission Date: 20150821
  Serious: Yes (Death, Hospitalization)
  Sender: FDA-Public Use
  Company Number: PHHY2015CN072366

PATIENT
  Age: 1 Year
  Sex: Male

DRUGS (15)
  1. VANCOMYCIN [Suspect]
     Active Substance: VANCOMYCIN
     Indication: ANTI-INFECTIVE THERAPY
     Route: 065
  2. VORICONAZOLE. [Suspect]
     Active Substance: VORICONAZOLE
     Indication: ANTI-INFECTIVE THERAPY
     Route: 065
  3. GAMMA GLOBULIN [Suspect]
     Active Substance: IMMUNE GLOBULIN NOS
     Indication: HISTIOCYTOSIS HAEMATOPHAGIC
     Dosage: 1 G/KG, UNK
     Route: 042
  4. DEXAMETHASONE. [Suspect]
     Active Substance: DEXAMETHASONE
     Indication: PNEUMONIA MYCOPLASMAL
  5. GAMMA GLOBULIN [Suspect]
     Active Substance: IMMUNE GLOBULIN NOS
     Indication: PNEUMONIA MYCOPLASMAL
  6. ETOPOSIDE. [Suspect]
     Active Substance: ETOPOSIDE
     Dosage: 150 MG/M2, QD (2 TIMES/WEEK)
     Route: 042
  7. MEROPENEM. [Suspect]
     Active Substance: MEROPENEM
     Indication: ANTI-INFECTIVE THERAPY
     Route: 065
  8. CICLOSPORIN [Suspect]
     Active Substance: CYCLOSPORINE
     Indication: HISTIOCYTOSIS HAEMATOPHAGIC
  9. DEXAMETHASONE. [Suspect]
     Active Substance: DEXAMETHASONE
     Indication: HISTIOCYTOSIS HAEMATOPHAGIC
     Dosage: 10 MG/M2, UNK
     Route: 048
  10. AZITHROMYCIN [Suspect]
     Active Substance: AZITHROMYCIN ANHYDROUS
     Indication: ANTI-INFECTIVE THERAPY
     Route: 065
  11. CEFEPIME [Suspect]
     Active Substance: CEFEPIME\CEFEPIME HYDROCHLORIDE
     Indication: ANTI-INFECTIVE THERAPY
     Route: 065
  12. MICAFUNGIN [Suspect]
     Active Substance: MICAFUNGIN
     Indication: ANTI-INFECTIVE THERAPY
     Route: 065
  13. ITRACONAZOLE. [Concomitant]
     Active Substance: ITRACONAZOLE
     Indication: INFECTION PROPHYLAXIS
     Route: 065
  14. SULFAMETHOXAZOLE [Concomitant]
     Active Substance: SULFAMETHOXAZOLE
     Indication: ANTIFUNGAL PROPHYLAXIS
     Route: 065
  15. CICLOSPORIN [Suspect]
     Active Substance: CYCLOSPORINE
     Indication: PNEUMONIA MYCOPLASMAL
     Dosage: 6 MG/KG, QD
     Route: 048

REACTIONS (4)
  - Multi-organ failure [Fatal]
  - Off label use [Unknown]
  - Condition aggravated [Unknown]
  - Histiocytosis haematophagic [Unknown]
